FAERS Safety Report 18263142 (Version 1)
Quarter: 2020Q3

REPORT INFORMATION
  Report Type: Spontaneous
  Country: US (occurrence: US)
  Receive Date: 20200914
  Receipt Date: 20200914
  Transmission Date: 20201103
  Serious: Yes (Other)
  Sender: FDA-Public Use
  Company Number: None

PATIENT
  Age: 35 Year
  Sex: Male
  Weight: 127.9 kg

DRUGS (10)
  1. COMBIVENT 1 PUFF Q6H [Concomitant]
     Dates: start: 20200909
  2. ENOXAPARIN 40 MG SC DAILY [Concomitant]
     Dates: start: 20200908
  3. ZINC SULFATE 220 MG PO BID [Concomitant]
     Dates: start: 20200908
  4. ASPIRIN 81 MG PO DAILY [Concomitant]
     Dates: start: 20200912
  5. REMDESIVIR. [Suspect]
     Active Substance: REMDESIVIR
     Indication: COVID-19
     Route: 040
     Dates: start: 20200912, end: 20200914
  6. ASCORBIC ACID 500 MG PO Q8H [Concomitant]
     Dates: start: 20200908
  7. FAMOTIDINE 20 MG PO BID [Concomitant]
     Dates: start: 20200908
  8. MELATONIN 6 MG PO DAILY [Concomitant]
     Dates: start: 20200908
  9. LOSARTAN 50 MG PO DAILY [Concomitant]
     Dates: start: 20200908
  10. METHYLPREDNISOLONE 40 MG IV TID [Concomitant]
     Dates: start: 20200911

REACTIONS (2)
  - Therapy cessation [None]
  - Alanine aminotransferase increased [None]

NARRATIVE: CASE EVENT DATE: 20200914
